FAERS Safety Report 20993108 (Version 2)
Quarter: 2023Q2

REPORT INFORMATION
  Report Type: Other
  Country: JP (occurrence: JP)
  Receive Date: 20220622
  Receipt Date: 20230406
  Transmission Date: 20230721
  Serious: Yes (Hospitalization, Other)
  Sender: FDA-Public Use
  Company Number: JP-ROCHE-3118787

PATIENT
  Age: 67 Year
  Sex: Female
  Weight: 48 kg

DRUGS (14)
  1. ATEZOLIZUMAB [Suspect]
     Active Substance: ATEZOLIZUMAB
     Indication: Lung adenocarcinoma
     Dosage: 1200MG,ONCE IN3WEEK
     Route: 041
     Dates: start: 20191224, end: 20200728
  2. BEVACIZUMAB [Suspect]
     Active Substance: BEVACIZUMAB
     Indication: Lung adenocarcinoma
     Dosage: 15MG/KG,ONCE IN3WEEK
     Route: 041
     Dates: start: 20191224, end: 20200728
  3. PEMETREXED [Suspect]
     Active Substance: PEMETREXED
     Indication: Lung adenocarcinoma
     Dosage: 500MG/M2,ONCE IN3WEEK
     Route: 041
     Dates: start: 20191224
  4. CARBOPLATIN [Suspect]
     Active Substance: CARBOPLATIN
     Indication: Lung adenocarcinoma
     Dosage: AUC5
     Route: 041
     Dates: start: 20191224
  5. CALCIUM POLYSTYRENE SULFONATE [Concomitant]
     Active Substance: CALCIUM POLYSTYRENE SULFONATE
     Indication: Hyperkalaemia
     Dosage: 10G,ONCE IN12HOUR
     Route: 048
     Dates: start: 20200319
  6. ESCHERICHIA COLI;HYDROCORTISONE [Concomitant]
     Indication: Haemorrhoids
     Dosage: PROPER QUANTITY AND DOSE INTERVAL UNCERTAINTY
     Route: 061
     Dates: start: 20200322
  7. SENNOSIDES A AND B [Concomitant]
     Active Substance: SENNOSIDES A AND B
     Indication: Constipation
     Dosage: FOR TON
     Route: 048
     Dates: start: 20200321
  8. LUNESTA [Concomitant]
     Active Substance: ESZOPICLONE
     Indication: Lung adenocarcinoma
     Dosage: 10 MILLIGRAM, BID
     Route: 048
     Dates: start: 20200702
  9. URSODIOL [Concomitant]
     Active Substance: URSODIOL
     Indication: Blood alkaline phosphatase increased
     Dosage: 200MG,ONCE IN8HOUR
     Route: 048
     Dates: start: 20200407
  10. SUVOREXANT [Concomitant]
     Active Substance: SUVOREXANT
     Indication: Non-small cell lung cancer
     Dosage: 20MG,ONCE IN1DAY
     Route: 048
     Dates: start: 20200318
  11. SUVOREXANT [Concomitant]
     Active Substance: SUVOREXANT
     Indication: Lung adenocarcinoma
  12. MAGNESIUM OXIDE [Concomitant]
     Active Substance: MAGNESIUM OXIDE
     Dosage: BEGINNING OF DOSAGE DAY: TRIAL PREINITIATION
     Route: 048
  13. KETOPROFEN [Concomitant]
     Active Substance: KETOPROFEN
     Indication: Arthralgia
     Dosage: PROPER QUANTITY AND DOSE INTERVAL UNCERTAINTY
     Route: 061
     Dates: start: 20200604
  14. SODIUM GUALENATE [Concomitant]
     Active Substance: SODIUM GUALENATE
     Indication: Infection prophylaxis
     Dosage: UNK
     Dates: start: 20200702, end: 20210731

REACTIONS (3)
  - Pyrexia [Recovered/Resolved]
  - Second primary malignancy [Recovering/Resolving]
  - Haemolysis [Recovering/Resolving]

NARRATIVE: CASE EVENT DATE: 20200728
